FAERS Safety Report 14473670 (Version 1)
Quarter: 2018Q1

REPORT INFORMATION
  Report Type: Spontaneous
  Country: US (occurrence: US)
  Receive Date: 20180201
  Receipt Date: 20180201
  Transmission Date: 20180509
  Serious: No
  Sender: FDA-Public Use
  Company Number: US-BIOGEN-2018BI00516754

PATIENT
  Sex: Male

DRUGS (1)
  1. SPINRAZA [Suspect]
     Active Substance: NUSINERSEN
     Indication: SPINAL MUSCULAR ATROPHY
     Route: 065
     Dates: start: 20170525

REACTIONS (1)
  - Malaise [Unknown]
